FAERS Safety Report 9132088 (Version 3)
Quarter: 2013Q2

REPORT INFORMATION
  Report Type: Spontaneous
  Country: US (occurrence: US)
  Receive Date: 20130301
  Receipt Date: 20130404
  Transmission Date: 20140414
  Serious: Yes (Other)
  Sender: FDA-Public Use
  Company Number: US-B.I. PHARMACEUTICALS,INC./RIDGEFIELD-2013-BI-04830BP

PATIENT
  Age: 57 Year
  Sex: Male
  Weight: 74 kg

DRUGS (7)
  1. PRADAXA [Suspect]
     Indication: ATRIAL FIBRILLATION
     Dosage: 300 MG
     Route: 048
     Dates: start: 20121005
  2. PRADAXA [Suspect]
     Indication: CEREBROVASCULAR ACCIDENT PROPHYLAXIS
  3. LISINOPRIL [Concomitant]
     Dosage: 5 MG
  4. METOPROLOL XL [Concomitant]
     Indication: ATRIAL FIBRILLATION
     Dosage: 25 MG
     Dates: start: 201209
  5. PAXIL [Concomitant]
     Dosage: 20 MG
  6. TRAZODONE [Concomitant]
     Indication: SLEEP DISORDER
  7. MULTIVITAMIN [Concomitant]

REACTIONS (12)
  - Cardiac failure [Not Recovered/Not Resolved]
  - Heart valve incompetence [Unknown]
  - Peripheral coldness [Not Recovered/Not Resolved]
  - Dyspnoea [Recovered/Resolved]
  - Dizziness [Not Recovered/Not Resolved]
  - Dizziness postural [Not Recovered/Not Resolved]
  - Decreased appetite [Not Recovered/Not Resolved]
  - Abnormal loss of weight [Not Recovered/Not Resolved]
  - Feeling cold [Not Recovered/Not Resolved]
  - Dizziness [Recovered/Resolved]
  - Angina pectoris [Unknown]
  - Chest pain [Recovered/Resolved]
